FAERS Safety Report 6163756-6 (Version None)
Quarter: 2009Q2

REPORT INFORMATION
  Report Type: 
  Country: None (occurrence: None)
  Receive Date: 20090422
  Receipt Date: 20090413
  Transmission Date: 20091009
  Serious: Yes (Other)
  Sender: FDA-Public Use
  Company Number: US-JNJFOC-20090403218

PATIENT
  Sex: Female

DRUGS (4)
  1. REMICADE [Suspect]
     Indication: COLITIS ULCERATIVE
     Route: 042
  2. MERCAPTOPURINE [Concomitant]
  3. MERCAPTOPURINE [Concomitant]
     Indication: COLITIS ULCERATIVE
  4. COLAZAL [Concomitant]
     Indication: COLITIS ULCERATIVE

REACTIONS (4)
  - ARTHRALGIA [None]
  - ARTHRITIS [None]
  - CEREBRAL VENOUS THROMBOSIS [None]
  - ERYTHEMA NODOSUM [None]
